FAERS Safety Report 7177745-6 (Version None)
Quarter: 2010Q4

REPORT INFORMATION
  Report Type: 
  Country: None (occurrence: None)
  Receive Date: 20101220
  Receipt Date: 20101208
  Transmission Date: 20110411
  Serious: Yes (Other)
  Sender: FDA-Public Use
  Company Number: US-SANOFI-AVENTIS-2010SA075066

PATIENT
  Age: 73 Year
  Sex: Male
  Weight: 75 kg

DRUGS (10)
  1. PLAVIX [Suspect]
     Indication: CORONARY ARTERY OCCLUSION
     Route: 048
     Dates: start: 20030101
  2. CADUET [Suspect]
     Dates: start: 20090101
  3. ASPIRIN [Concomitant]
  4. METOPROLOL TARTRATE [Concomitant]
  5. METOPROLOL TARTRATE [Concomitant]
  6. IMDUR [Concomitant]
  7. ZETIA [Concomitant]
  8. TRICOR [Concomitant]
  9. RANITIDINE [Concomitant]
  10. CALCIUM [Concomitant]

REACTIONS (3)
  - CHEST PAIN [None]
  - CORONARY ARTERY OCCLUSION [None]
  - HIATUS HERNIA [None]
